FAERS Safety Report 12393657 (Version 2)
Quarter: 2016Q3

REPORT INFORMATION
  Report Type: Report from Study
  Country: US (occurrence: US)
  Receive Date: 20160523
  Receipt Date: 20160905
  Transmission Date: 20161109
  Serious: Yes (Hospitalization)
  Sender: FDA-Public Use
  Company Number: US-ROCHE-1747561

PATIENT
  Age: 84 Year
  Sex: Male
  Weight: 82.63 kg

DRUGS (16)
  1. FUROSEMIDE. [Concomitant]
     Active Substance: FUROSEMIDE
  2. ESBRIET [Suspect]
     Active Substance: PIRFENIDONE
     Indication: IDIOPATHIC PULMONARY FIBROSIS
     Dosage: 1 CAPSULE
     Route: 048
     Dates: start: 20160413
  3. ESBRIET [Suspect]
     Active Substance: PIRFENIDONE
     Route: 048
     Dates: start: 20160509
  4. BREO ELLIPTA [Concomitant]
     Active Substance: FLUTICASONE FUROATE\VILANTEROL TRIFENATATE
  5. NEFAZODONE [Concomitant]
     Active Substance: NEFAZODONE
     Indication: BLOOD PRESSURE MEASUREMENT
     Route: 048
  6. ESBRIET [Suspect]
     Active Substance: PIRFENIDONE
     Dosage: 3 CAPSULES
     Route: 048
     Dates: start: 20160421
  7. ESBRIET [Suspect]
     Active Substance: PIRFENIDONE
     Indication: LUNG NEOPLASM MALIGNANT
     Dosage: 2 CAPSULES
     Route: 048
     Dates: start: 20160420
  8. PREDNISONE. [Concomitant]
     Active Substance: PREDNISONE
  9. ESBRIET [Suspect]
     Active Substance: PIRFENIDONE
     Route: 048
     Dates: start: 20160424
  10. NIFEDIPINE. [Concomitant]
     Active Substance: NIFEDIPINE
  11. ASPIRIN. [Concomitant]
     Active Substance: ASPIRIN
     Route: 048
  12. LEFLUNOMIDE. [Concomitant]
     Active Substance: LEFLUNOMIDE
     Indication: ARTHRITIS
     Route: 048
  13. CARVEDILOL. [Concomitant]
     Active Substance: CARVEDILOL
  14. ATORVASTATIN [Concomitant]
     Active Substance: ATORVASTATIN
     Indication: BLOOD CHOLESTEROL
     Route: 048
  15. LORAZEPAM. [Concomitant]
     Active Substance: LORAZEPAM
     Indication: ANXIETY
     Route: 048
  16. VITAMIN B12 [Concomitant]
     Active Substance: CYANOCOBALAMIN
     Route: 048

REACTIONS (7)
  - Incorrect dose administered [Unknown]
  - Rheumatoid arthritis [Unknown]
  - Decreased appetite [Not Recovered/Not Resolved]
  - Off label use [Unknown]
  - Fall [Unknown]
  - Pneumonia [Unknown]
  - Weight decreased [Not Recovered/Not Resolved]

NARRATIVE: CASE EVENT DATE: 20160510
